FAERS Safety Report 22043378 (Version 4)
Quarter: 2023Q1

REPORT INFORMATION
  Report Type: Spontaneous
  Country: US (occurrence: US)
  Receive Date: 20230228
  Receipt Date: 20230306
  Transmission Date: 20230418
  Serious: Yes (Other)
  Sender: FDA-Public Use
  Company Number: US-SANOFI-01505034

PATIENT
  Age: 75 Year
  Sex: Female

DRUGS (1)
  1. LANTUS SOLOSTAR [Suspect]
     Active Substance: INSULIN GLARGINE
     Indication: Type 2 diabetes mellitus
     Dosage: 13 U, QD

REACTIONS (5)
  - Cerebrovascular accident [Unknown]
  - Paralysis [Unknown]
  - Gait disturbance [Unknown]
  - Injection site bruising [Unknown]
  - Device issue [Unknown]
